FAERS Safety Report 15466647 (Version 1)
Quarter: 2018Q4

REPORT INFORMATION
  Report Type: Spontaneous
  Country: US (occurrence: US)
  Receive Date: 20181005
  Receipt Date: 20181005
  Transmission Date: 20190204
  Serious: No
  Sender: FDA-Public Use
  Company Number: US-CONCORDIA PHARMACEUTICALS INC.-GSH201806-002190

PATIENT
  Age: 72 Year
  Sex: Female

DRUGS (1)
  1. CLONIDINE. [Suspect]
     Active Substance: CLONIDINE
     Indication: HYPERTENSION
     Route: 048

REACTIONS (10)
  - Hypotension [Not Recovered/Not Resolved]
  - Rosacea [Not Recovered/Not Resolved]
  - Rash [Not Recovered/Not Resolved]
  - Off label use [Unknown]
  - Product formulation issue [Unknown]
  - Drug dependence [Not Recovered/Not Resolved]
  - Product administration error [Unknown]
  - Dry mouth [Not Recovered/Not Resolved]
  - Intentional product misuse [Unknown]
  - Hypertension [Not Recovered/Not Resolved]
